FAERS Safety Report 11801560 (Version 3)
Quarter: 2016Q1

REPORT INFORMATION
  Report Type: Spontaneous
  Country: US (occurrence: US)
  Receive Date: 20151204
  Receipt Date: 20160201
  Transmission Date: 20160525
  Serious: No
  Sender: FDA-Public Use
  Company Number: US-PFIZER INC-2015404958

PATIENT
  Age: 73 Year
  Sex: Female
  Weight: 80.45 kg

DRUGS (42)
  1. XGEVA [Concomitant]
     Active Substance: DENOSUMAB
     Dosage: 120 MG, UNK (SECOND LOADING DOSE )
     Route: 058
     Dates: start: 20141204
  2. XGEVA [Concomitant]
     Active Substance: DENOSUMAB
     Dosage: UNK (CYCLE 13)
     Dates: start: 20151022
  3. POTASSIUM CHLORIDE. [Concomitant]
     Active Substance: POTASSIUM CHLORIDE
     Dosage: 10 MEQ, 2X/DAY (WITH FOOD)
     Route: 048
     Dates: start: 20150703
  4. NITROSTAT [Concomitant]
     Active Substance: NITROGLYCERIN
     Dosage: 0.4 MG, AS NEEDED
     Route: 060
     Dates: start: 20100319
  5. FAMOTIDINE. [Concomitant]
     Active Substance: FAMOTIDINE
     Dosage: 40 MG, DAILY
     Route: 048
     Dates: start: 20140326
  6. CYCLOBENZAPRINE [Concomitant]
     Active Substance: CYCLOBENZAPRINE
     Indication: PAIN
     Dosage: 10 MG, AS NEEDED (3 TIMES EVERY DAY)
     Route: 048
     Dates: start: 20151119
  7. PROAIR HFA [Concomitant]
     Active Substance: ALBUTEROL SULFATE
     Dosage: UNK UNK, AS NEEDED (EVERY 4 - 6 HOURS)
     Dates: start: 20151215
  8. IBRANCE [Suspect]
     Active Substance: PALBOCICLIB
     Dosage: 100 MG, CYCLIC (1-21EVERY 4 WEEKS)
     Dates: start: 20151119
  9. FASLODEX [Concomitant]
     Active Substance: FULVESTRANT
     Dosage: 10 ML, MONTHLY
     Route: 030
     Dates: start: 20151129
  10. AMLODIPINE [Concomitant]
     Active Substance: AMLODIPINE BESYLATE
     Dosage: 5 MG, DAILY
     Route: 048
     Dates: start: 20151119
  11. ISOSORBIDE MONONITRATE. [Concomitant]
     Active Substance: ISOSORBIDE MONONITRATE
     Dosage: UNK UNK, 1X/DAY
     Route: 048
     Dates: start: 20151216
  12. XGEVA [Concomitant]
     Active Substance: DENOSUMAB
     Dosage: UNK (CYCLE 12)
     Dates: start: 20150924
  13. VOLTAREN [Concomitant]
     Active Substance: DICLOFENAC SODIUM
     Indication: ARTHRALGIA
     Dosage: UNK, AS NEEDED
     Dates: start: 20151009
  14. VENTOLIN HFA [Concomitant]
     Active Substance: ALBUTEROL SULFATE
     Dosage: AS NEEDED (90 MCG/ACTUATION AEROSOL INHALER; INHALE 2 PUFF; 4 - 6 HOURS)
     Route: 055
     Dates: start: 20140424
  15. PLAVIX [Concomitant]
     Active Substance: CLOPIDOGREL BISULFATE
     Dosage: 75 MG, 1X/DAY
     Route: 048
     Dates: start: 20140509
  16. LISINOPRIL. [Concomitant]
     Active Substance: LISINOPRIL
     Dosage: 20 MG, 1 TABLET, EVERY DAY
     Route: 048
     Dates: start: 20151119
  17. LETROZOLE. [Concomitant]
     Active Substance: LETROZOLE
     Dosage: 2.5 MG, DAILY
     Route: 048
     Dates: start: 20151215
  18. IBRANCE [Suspect]
     Active Substance: PALBOCICLIB
     Dosage: UNK (CYCLE 2)
     Dates: start: 20151217
  19. FASLODEX [Concomitant]
     Active Substance: FULVESTRANT
     Dosage: 500 MG, UNK (CYCLE 2; EVERY 4 WEEKS)
     Route: 030
     Dates: start: 20141218
  20. FASLODEX [Concomitant]
     Active Substance: FULVESTRANT
     Dosage: UNK (CYCLE 5)
     Dates: start: 20150313
  21. XGEVA [Concomitant]
     Active Substance: DENOSUMAB
     Dosage: UNK (CYCLE 6)
     Dates: start: 20150409
  22. PRAVASTATIN [Concomitant]
     Active Substance: PRAVASTATIN\PRAVASTATIN SODIUM
     Dosage: 20 MG, DAILY
     Route: 048
     Dates: start: 20140831
  23. CALCIUM 600 + D(3) [Concomitant]
     Dosage: 600 MG/200 UNIT CAPSULE, TAKING 2 DAILY
     Dates: start: 20140903
  24. PANTOPRAZOLE [Concomitant]
     Active Substance: PANTOPRAZOLE SODIUM
     Dosage: 40 MG, 1 TABLET, DAILY
     Route: 048
     Dates: start: 20151119
  25. FEMARA [Concomitant]
     Active Substance: LETROZOLE
     Dosage: 2.5 MG, DAILY
  26. FASLODEX [Concomitant]
     Active Substance: FULVESTRANT
     Dosage: 500 MG, UNK (SECOND LOADING DOSE)
     Route: 030
     Dates: start: 20141204
  27. FASLODEX [Concomitant]
     Active Substance: FULVESTRANT
     Dosage: UNK (CYCLE 13)
     Dates: start: 20151022
  28. LOPERAMIDE [Concomitant]
     Active Substance: LOPERAMIDE
     Dosage: 2 MG CAPSULE, 2 CAPS, 4X/DAY (AFTER EACH LOOSE STOOL)
     Route: 048
     Dates: start: 20151119
  29. METOPROLOL TARTRATE. [Concomitant]
     Active Substance: METOPROLOL TARTRATE
     Dosage: 25 MG, 1 TABLET, 2X/DAY
     Route: 048
     Dates: start: 20151119
  30. NORCO [Concomitant]
     Active Substance: ACETAMINOPHEN\HYDROCODONE BITARTRATE
     Indication: PAIN
     Dosage: 10 MG-325 MG TABLET, 1 TABLET BY ORAL ROUTE EVERY 4 - 6 HOURS AS NEEDED
     Route: 048
     Dates: start: 20150703
  31. NEXIUM [Concomitant]
     Active Substance: ESOMEPRAZOLE MAGNESIUM
     Dosage: 40 MG, DAILY
     Route: 048
     Dates: start: 20080327
  32. HYDROCODONE/ACETAMINOPHEN [Concomitant]
     Active Substance: ACETAMINOPHEN\HYDROCODONE
     Indication: PAIN
     Dosage: 7.5 MG/325 MG TABLET, 1/2 TO 1 TABLET, EVERY 4 - 6 HOURS AS NEEDED
     Route: 048
     Dates: start: 20151119
  33. TRIAMTERENE/HYDROCHLOROTHIAZID [Concomitant]
     Dosage: 37.5 MG/25 MG CAPSULE, 1 CAPSULE EVERY DAY
     Route: 048
     Dates: start: 20151119
  34. IBRANCE [Suspect]
     Active Substance: PALBOCICLIB
     Indication: OESTROGEN RECEPTOR POSITIVE BREAST CANCER
     Dosage: 125 MG, CYCLIC (CYCLE 1; DAILY DAYS 1-21 OF 28 DAYS)
     Route: 048
     Dates: start: 20151022
  35. IBRANCE [Suspect]
     Active Substance: PALBOCICLIB
     Dosage: 100 MG, CYCLIC (DAILY FOR 3 WEEKS THEN STOP FOR 1 WEEK)
     Route: 048
     Dates: start: 20151105
  36. FASLODEX [Concomitant]
     Active Substance: FULVESTRANT
     Dosage: UNK (CYCLE 6)
     Dates: start: 20150409
  37. XGEVA [Concomitant]
     Active Substance: DENOSUMAB
     Dosage: 120 MG, UNK (FIRST LOADING DOSE)
     Route: 058
     Dates: start: 20141120
  38. LOVAZA [Concomitant]
     Active Substance: OMEGA-3-ACID ETHYL ESTERS
     Dosage: 4 G, DAILY
     Route: 048
     Dates: start: 20140326
  39. XGEVA [Concomitant]
     Active Substance: DENOSUMAB
     Dosage: 1.7 ML, UNK (EVERY 4 WEEKS)
     Route: 058
     Dates: start: 20151129
  40. ASA [Concomitant]
     Active Substance: ASPIRIN
     Dosage: 81 MG, UNK
  41. FASLODEX [Concomitant]
     Active Substance: FULVESTRANT
     Dosage: 500 MG, UNK (FIRST LOADING DOSE)
     Route: 030
     Dates: start: 20141120
  42. FASLODEX [Concomitant]
     Active Substance: FULVESTRANT
     Dosage: UNK, UNK
     Dates: start: 20150924

REACTIONS (5)
  - Arthralgia [Not Recovered/Not Resolved]
  - Dyspnoea [Unknown]
  - Diarrhoea [Recovering/Resolving]
  - Disease progression [Unknown]
  - Breast cancer metastatic [Unknown]
